FAERS Safety Report 7413373-2 (Version None)
Quarter: 2011Q2

REPORT INFORMATION
  Report Type: 
  Country: None (occurrence: None)
  Receive Date: 20110413
  Receipt Date: 20110329
  Transmission Date: 20111010
  Serious: No
  Sender: FDA-Public Use
  Company Number: US-B.I. PHARMACEUTICALS,INC./RIDGEFIELD-2011-BP-09707BP

PATIENT
  Sex: Female

DRUGS (9)
  1. PRADAXA [Suspect]
     Indication: ATRIAL FIBRILLATION
     Dosage: 300 MG
     Route: 048
     Dates: start: 20110310
  2. CARTIA XT [Concomitant]
  3. METFORMIN [Concomitant]
     Indication: CEREBROVASCULAR ACCIDENT PROPHYLAXIS
  4. LOPRESSOR [Concomitant]
     Indication: HYPERTENSION
  5. XANAX [Concomitant]
     Indication: SLEEP DISORDER
  6. LIPITOR [Concomitant]
     Indication: HYPERTENSION
  7. XANAX [Concomitant]
     Indication: ANXIETY
  8. PREVACID [Concomitant]
     Indication: DYSPEPSIA
  9. PAROXETINE HCL [Concomitant]
     Indication: ANXIETY

REACTIONS (2)
  - HEART RATE INCREASED [None]
  - NAUSEA [None]
